FAERS Safety Report 10394213 (Version 2)
Quarter: 2014Q3

REPORT INFORMATION
  Report Type: Spontaneous
  Country: FR (occurrence: FR)
  Receive Date: 20140819
  Receipt Date: 20140827
  Transmission Date: 20150326
  Serious: Yes (Hospitalization, Other)
  Sender: FDA-Public Use
  Company Number: FR-GILEAD-2014-0111809

PATIENT
  Age: 40 Year
  Sex: Male
  Weight: 73 kg

DRUGS (15)
  1. PENTACARINAT [Concomitant]
     Active Substance: PENTAMIDINE ISETHIONATE
     Dosage: UNK
     Dates: start: 20140624
  2. RIFINAH [Concomitant]
     Active Substance: ISONIAZID\RIFAMPIN
     Dosage: 2 DF, QD
     Dates: start: 201406
  3. CLINDAMYCIN [Concomitant]
     Active Substance: CLINDAMYCIN\CLINDAMYCIN PHOSPHATE
     Dosage: 1600 MG, QD
     Dates: start: 20140513
  4. FOLINIC ACID [Concomitant]
     Active Substance: LEUCOVORIN
     Indication: CEREBRAL TOXOPLASMOSIS
     Dosage: UNK
     Dates: start: 20140417
  5. ETHAMBUTOL [Concomitant]
     Active Substance: ETHAMBUTOL HYDROCHLORIDE
     Indication: TUBERCULOSIS
     Dosage: 500 DF, TID
     Dates: start: 20140418
  6. ANSATIPINE [Concomitant]
     Active Substance: RIFABUTIN
     Dosage: UNK
  7. ISENTRESS [Suspect]
     Active Substance: RALTEGRAVIR POTASSIUM
     Indication: HIV INFECTION
     Dosage: 800 MG, QD
     Route: 048
     Dates: start: 20140624, end: 20140712
  8. MALOCIDE                           /00112501/ [Concomitant]
     Active Substance: PYRIMETHAMINE
     Indication: CEREBRAL TOXOPLASMOSIS
     Dosage: 100 MG, QD
     Dates: start: 20140417
  9. EXTENCILLINE                       /00000904/ [Concomitant]
     Indication: TREPONEMA TEST POSITIVE
     Dosage: 1 DF, Q1WK
     Dates: start: 20140417
  10. LEDERFOLINE [Concomitant]
     Active Substance: LEUCOVORIN CALCIUM
  11. ROVALCYTE [Suspect]
     Active Substance: VALGANCICLOVIR HYDROCHLORIDE
     Indication: CYTOMEGALOVIRUS INFECTION
     Dosage: 900 MG, UNK
     Route: 048
     Dates: start: 20140603, end: 20140717
  12. RIMIFON [Concomitant]
     Active Substance: ISONIAZID
     Indication: TUBERCULOSIS
     Dosage: 300 DF, QD
     Dates: start: 20140418
  13. CORTANCYL [Concomitant]
     Active Substance: PREDNISONE
  14. TRUVADA [Suspect]
     Active Substance: EMTRICITABINE\TENOFOVIR DISOPROXIL FUMARATE
     Indication: HIV INFECTION
     Dosage: 1 DF, QD
     Route: 048
     Dates: start: 20140624, end: 20140717
  15. ANSATIPINE [Concomitant]
     Active Substance: RIFABUTIN
     Dosage: 300 MG, QD
     Dates: start: 20140513, end: 201406

REACTIONS (1)
  - Drug reaction with eosinophilia and systemic symptoms [Recovering/Resolving]

NARRATIVE: CASE EVENT DATE: 20140712
